FAERS Safety Report 9443030 (Version 2)
Quarter: 2014Q3

REPORT INFORMATION
  Report Type: Spontaneous
  Country: MX (occurrence: MX)
  Receive Date: 20130806
  Receipt Date: 20140714
  Transmission Date: 20150326
  Serious: Yes (Disabling, Other)
  Sender: FDA-Public Use
  Company Number: PHHY2013MX083291

PATIENT
  Age: 50 Year
  Sex: Female

DRUGS (2)
  1. EXFORGE HCT [Suspect]
     Active Substance: AMLODIPINE BESYLATE\HYDROCHLOROTHIAZIDE\VALSARTAN
     Indication: HYPERTENSION
     Dosage: 1 DF (VALS 320 MG, AMLO 10 MG, HYDR 25 MG), DAILY
     Route: 048
     Dates: start: 20120919
  2. RENOPROTEC [Concomitant]
     Indication: RENAL DISORDER
     Dosage: UNK UKN, UNK

REACTIONS (1)
  - Blindness [Not Recovered/Not Resolved]
